FAERS Safety Report 6104357-5 (Version None)
Quarter: 2009Q1

REPORT INFORMATION
  Report Type: 
  Country: None (occurrence: None)
  Receive Date: 20090302
  Receipt Date: 20090223
  Transmission Date: 20090719
  Serious: Yes (Other)
  Sender: FDA-Public Use
  Company Number: 197761

PATIENT
  Age: 6 Year
  Sex: Female

DRUGS (7)
  1. DBL METHOTREXATE 50MG/2ML INJECTION BP VIAL (METHOTREXATE) [Suspect]
     Indication: NERVOUS SYSTEM DISORDER
     Dosage: DAYS 14 AND 28, INTRATHECAL; ( EVERY WEEK ) INTRATHECAL; INTRATHECAL
     Route: 037
  2. DBL METHOTREXATE 50MG/2ML INJECTION BP VIAL (METHOTREXATE) [Suspect]
     Indication: PROPHYLAXIS
     Dosage: DAYS 14 AND 28, INTRATHECAL; ( EVERY WEEK ) INTRATHECAL; INTRATHECAL
     Route: 037
  3. VINCRISTINE [Concomitant]
  4. (PREDNISOLONE) [Concomitant]
  5. DAUNORUBICIN HCL [Concomitant]
  6. ELSPAR [Concomitant]
  7. CYTARABINE [Concomitant]

REACTIONS (2)
  - CHOREA [None]
  - HYPOTONIA [None]
